FAERS Safety Report 8893510 (Version 1)
Quarter: 2012Q4

REPORT INFORMATION
  Report Type: 
  Country: US (occurrence: US)
  Receive Date: 20121107
  Receipt Date: 20121107
  Transmission Date: 20130627
  Serious: No
  Sender: FDA-Public Use
  Company Number: US-AMGEN-USASP2011052869

PATIENT
  Age: 44 Year
  Sex: Male

DRUGS (5)
  1. ENBREL [Suspect]
     Indication: PRODUCT USED FOR UNKNOWN INDICATION
     Dosage: 50 mg, qwk
  2. MELOXICAM [Concomitant]
     Dosage: 7.5 mg, UNK
  3. METHOTREXATE [Concomitant]
     Dosage: 2.5 mg, UNK
  4. FOLIC ACID [Concomitant]
     Dosage: 1 mg, UNK
  5. CALCIUM + VITAMIN D                /01483701/ [Concomitant]

REACTIONS (1)
  - Headache [Unknown]
